FAERS Safety Report 4673335-5 (Version None)
Quarter: 2005Q2

REPORT INFORMATION
  Report Type: 
  Country: None (occurrence: None)
  Receive Date: 20050524
  Receipt Date: 20050524
  Transmission Date: 20051028
  Serious: Yes (Life-Threatening, Hospitalization)
  Sender: FDA-Public Use
  Company Number: None

PATIENT
  Age: 68 Year
  Sex: Male
  Weight: 95.5 kg

DRUGS (12)
  1. SPIRONOLACTONE [Suspect]
     Dosage: 100MG QOD
  2. CAPTOPRIL [Suspect]
     Dosage: 50MG BID
  3. HUMALOG [Concomitant]
  4. NOVOLIN N [Concomitant]
  5. FUROSEMIDE [Concomitant]
  6. LACTULOSE [Concomitant]
  7. OMEPRAZOLE [Concomitant]
  8. NEOMYCIN [Concomitant]
  9. AMBIEN [Concomitant]
  10. PHENERGAN [Concomitant]
  11. INDERAL [Concomitant]
  12. OXYGEN [Concomitant]

REACTIONS (2)
  - ELECTROCARDIOGRAM T WAVE PEAKED [None]
  - HYPERKALAEMIA [None]
